FAERS Safety Report 5380807-7 (Version None)
Quarter: 2007Q3

REPORT INFORMATION
  Report Type: 
  Country: None (occurrence: None)
  Receive Date: 20070706
  Receipt Date: 20070628
  Transmission Date: 20080115
  Serious: Yes (Hospitalization)
  Sender: FDA-Public Use
  Company Number: US-ROCHE-504626

PATIENT
  Age: 67 Year
  Sex: Female

DRUGS (1)
  1. VALCYTE [Suspect]
     Route: 065

REACTIONS (2)
  - DEHYDRATION [None]
  - VOMITING [None]
